FAERS Safety Report 6824674-0 (Version None)
Quarter: 2010Q3

REPORT INFORMATION
  Report Type: 
  Country: None (occurrence: None)
  Receive Date: 20100708
  Receipt Date: 20061106
  Transmission Date: 20110219
  Serious: No
  Sender: FDA-Public Use
  Company Number: US-PFIZER INC-2006138948

PATIENT
  Sex: Female
  Weight: 46.72 kg

DRUGS (3)
  1. CHANTIX [Suspect]
     Indication: EX-TOBACCO USER
     Dates: start: 20061026
  2. TARKA [Concomitant]
     Indication: HYPERTENSION
  3. FOLEX [Concomitant]
     Indication: BLOOD HOMOCYSTEINE

REACTIONS (3)
  - ABDOMINAL DISCOMFORT [None]
  - STRESS [None]
  - VOMITING [None]
